FAERS Safety Report 13429736 (Version 3)
Quarter: 2017Q3

REPORT INFORMATION
  Report Type: Spontaneous
  Country: JP (occurrence: JP)
  Receive Date: 20170412
  Receipt Date: 20170703
  Transmission Date: 20171127
  Serious: Yes (Hospitalization, Other)
  Sender: FDA-Public Use
  Company Number: JP-AMGEN-JPNSP2017038122

PATIENT
  Age: 80 Year
  Sex: Female

DRUGS (4)
  1. CELECOX [Suspect]
     Active Substance: CELECOXIB
     Indication: PRODUCT USED FOR UNKNOWN INDICATION
     Dosage: UNK
     Route: 065
  2. ENBREL [Suspect]
     Active Substance: ETANERCEPT
     Indication: RHEUMATOID ARTHRITIS
     Dosage: 25 MG, 2X/WEEK
     Route: 058
     Dates: start: 201109
  3. METHOTREXATE SODIUM. [Suspect]
     Active Substance: METHOTREXATE SODIUM
     Indication: PRODUCT USED FOR UNKNOWN INDICATION
     Dosage: 4 DF, WEEKLY
     Route: 065
     Dates: start: 201109
  4. LYRICA [Concomitant]
     Active Substance: PREGABALIN
     Indication: PAIN
     Dosage: UNK

REACTIONS (12)
  - Oropharyngeal pain [Unknown]
  - Chills [Unknown]
  - Fatigue [Unknown]
  - Anaemia [Recovered/Resolved with Sequelae]
  - Pneumonia [Recovered/Resolved]
  - Gastric ulcer [Recovered/Resolved with Sequelae]
  - Heat illness [Recovered/Resolved]
  - Rhinorrhoea [Unknown]
  - Cough [Unknown]
  - Generalised oedema [Recovered/Resolved with Sequelae]
  - Nasopharyngitis [Unknown]
  - Seizure [Unknown]

NARRATIVE: CASE EVENT DATE: 2016
